FAERS Safety Report 8016259-8 (Version None)
Quarter: 2011Q4

REPORT INFORMATION
  Report Type: 
  Country: None (occurrence: None)
  Receive Date: 20111230
  Receipt Date: 20111220
  Transmission Date: 20120403
  Serious: Yes (Hospitalization, Other)
  Sender: FDA-Public Use
  Company Number: US-MERCK-0912USA00109

PATIENT
  Age: 55 Year
  Sex: Male
  Weight: 76 kg

DRUGS (2)
  1. ACTONEL [Suspect]
     Indication: OSTEOPOROSIS
     Route: 048
     Dates: start: 20030414, end: 20040405
  2. FOSAMAX [Suspect]
     Indication: OSTEOPOROSIS
     Route: 048
     Dates: start: 20040405, end: 20080601

REACTIONS (28)
  - HYPERTENSION [None]
  - SENSITIVITY OF TEETH [None]
  - SINUS POLYP [None]
  - VISION BLURRED [None]
  - CHRONIC SINUSITIS [None]
  - OSTEOMYELITIS [None]
  - MASTOIDITIS [None]
  - EUSTACHIAN TUBE DYSFUNCTION [None]
  - ORAL INFECTION [None]
  - TOOTH FRACTURE [None]
  - SINUSITIS [None]
  - NASAL SEPTUM DEVIATION [None]
  - EXOSTOSIS [None]
  - OSTEONECROSIS OF JAW [None]
  - BASAL CELL CARCINOMA [None]
  - TRISMUS [None]
  - DRUG INEFFECTIVE [None]
  - SPINAL COMPRESSION FRACTURE [None]
  - TUNNEL VISION [None]
  - LACERATION [None]
  - HEADACHE [None]
  - DIZZINESS [None]
  - CYST [None]
  - CELLULITIS [None]
  - CONDUCTIVE DEAFNESS [None]
  - TOOTH DISORDER [None]
  - ORAL DISORDER [None]
  - EAR PAIN [None]
